FAERS Safety Report 8851948 (Version 1)
Quarter: 2012Q4

REPORT INFORMATION
  Report Type: 
  Country: CH (occurrence: CH)
  Receive Date: 20121022
  Receipt Date: 20121022
  Transmission Date: 20130627
  Serious: Yes (Hospitalization, Other)
  Sender: FDA-Public Use
  Company Number: CH-ELI_LILLY_AND_COMPANY-CH201210003575

PATIENT
  Age: 46 Year
  Sex: Female

DRUGS (6)
  1. FLUOXETINE [Suspect]
     Dosage: 60 mg, qd
     Route: 048
     Dates: start: 201009, end: 20111214
  2. FLUOXETINE [Suspect]
     Dosage: 40 mg, qd
     Route: 048
  3. ZYPREXA [Suspect]
     Dosage: 2.5 mg, qd
     Route: 048
     Dates: start: 20111214, end: 20111218
  4. LAMOTRIGIN [Concomitant]
     Dosage: 50 mg, qd
     Route: 048
     Dates: start: 201009, end: 20111218
  5. LAMOTRIGIN [Concomitant]
     Dosage: 75 mg, qd
     Route: 048
     Dates: start: 20111219, end: 20120109
  6. LAMOTRIGIN [Concomitant]
     Dosage: 100 mg, qd
     Route: 048
     Dates: start: 20120110

REACTIONS (4)
  - Hospitalisation [Recovered/Resolved]
  - Blood prolactin increased [Recovered/Resolved]
  - Night sweats [Recovered/Resolved]
  - Breast discomfort [Recovered/Resolved]
